FAERS Safety Report 8644932 (Version 2)
Quarter: 2012Q4

REPORT INFORMATION
  Report Type: Report from Study
  Country: JP (occurrence: JP)
  Receive Date: 20120702
  Receipt Date: 20121220
  Transmission Date: 20130627
  Serious: Yes (Death)
  Sender: FDA-Public Use
  Company Number: JP-BAYER-2012-062182

PATIENT
  Age: 78 Year
  Sex: Male
  Weight: 53 kg

DRUGS (6)
  1. NEXAVAR [Suspect]
     Dosage: 400 mg, QD
     Route: 048
     Dates: start: 20110325, end: 20110421
  2. NEXAVAR [Suspect]
     Dosage: 400 mg, QOD
     Dates: start: 20110421, end: 20110523
  3. NEXAVAR [Suspect]
     Dosage: 400 mg, QD
     Dates: start: 20110524, end: 20110729
  4. URSO [Concomitant]
     Dosage: Daily dose 300 mg
     Route: 048
     Dates: start: 2006, end: 201108
  5. TAKEPRON [Concomitant]
     Dosage: Daily dose 15 mg
     Route: 048
     Dates: end: 201108
  6. LIVACT [Concomitant]
     Dosage: Daily dose 12.45 g
     Route: 048
     Dates: end: 201108

REACTIONS (3)
  - Hepatic function abnormal [Fatal]
  - Hepatocellular carcinoma [Fatal]
  - Platelet count decreased [Recovered/Resolved]
